FAERS Safety Report 20375343 (Version 1)
Quarter: 2022Q1

REPORT INFORMATION
  Report Type: Spontaneous
  Country: JP (occurrence: JP)
  Receive Date: 20220125
  Receipt Date: 20220125
  Transmission Date: 20220423
  Serious: Yes (Other)
  Sender: FDA-Public Use
  Company Number: JP-PFIZER INC-202200050739

PATIENT
  Age: 78 Year
  Sex: Female
  Weight: 44.2 kg

DRUGS (4)
  1. LORBRENA [Suspect]
     Active Substance: LORLATINIB
     Indication: Lung adenocarcinoma
     Dosage: 100 MG, DAILY (DAY 1- DAY 3)
     Route: 048
  2. LORBRENA [Suspect]
     Active Substance: LORLATINIB
     Dosage: 100 MG, DAILY (DAY 5- DAY 6, INJECTED INTO THE ORAL CAVITY)
     Route: 048
  3. LORBRENA [Suspect]
     Active Substance: LORLATINIB
     Dosage: 75 MG, DAILY (SIMPLE SUSPENSION, DAY 7-DAY 11)
     Route: 048
  4. LORBRENA [Suspect]
     Active Substance: LORLATINIB
     Dosage: 75 MG, DAILY (TABLET ADMINISTRATION, DAY 12-DAY 35)
     Route: 048

REACTIONS (5)
  - Delirium [Unknown]
  - Altered state of consciousness [Recovered/Resolved]
  - Condition aggravated [Recovered/Resolved]
  - Aggression [Recovering/Resolving]
  - Off label use [Unknown]
